FAERS Safety Report 15221481 (Version 2)
Quarter: 2018Q4

REPORT INFORMATION
  Report Type: Spontaneous
  Country: GB (occurrence: GB)
  Receive Date: 20180731
  Receipt Date: 20181008
  Transmission Date: 20190204
  Serious: Yes (Disabling, Other)
  Sender: FDA-Public Use
  Company Number: GB-PFIZER INC-2018300887

PATIENT
  Age: 66 Year
  Sex: Male
  Weight: 83 kg

DRUGS (21)
  1. CALCIUM CARBONATE. [Concomitant]
     Active Substance: CALCIUM CARBONATE
     Dosage: 2 DF, DAILY
     Dates: start: 20171115
  2. BETAHISTINE [Concomitant]
     Active Substance: BETAHISTINE
     Dosage: 3 DF, DAILY
     Dates: start: 20171115
  3. PARACETAMOL [Concomitant]
     Active Substance: ACETAMINOPHEN
     Dosage: UNK, TAKE 2 4 TIMES/DAY, AS NEEDED
     Dates: start: 20170720
  4. SALBUTAMOL [Concomitant]
     Active Substance: ALBUTEROL
     Dosage: 2 PUFFS EVERY 4 TO 6 HOURS AS REQ
     Dates: start: 20180419, end: 20180514
  5. FOSTAIR [Concomitant]
     Active Substance: BECLOMETHASONE\FORMOTEROL
     Indication: ASTHMA
     Dosage: 4 DF, DAILY PUFFS
     Dates: start: 20180412, end: 20180510
  6. DOXYCYCLINE. [Concomitant]
     Active Substance: DOXYCYCLINE
     Dosage: 2 DF, NOW
     Dates: start: 20180412, end: 20180412
  7. CIPROFLOXACIN. [Suspect]
     Active Substance: CIPROFLOXACIN
     Dosage: UNK
     Dates: start: 20180503
  8. DOXYCYCLINE. [Concomitant]
     Active Substance: DOXYCYCLINE
     Dosage: 1 DF, DAILY
     Dates: start: 20180413, end: 20180419
  9. ATORVASTATIN [Concomitant]
     Active Substance: ATORVASTATIN
     Dosage: 1 DF, 1X/DAY
     Route: 048
     Dates: start: 20171115
  10. MIRTAZAPINE. [Concomitant]
     Active Substance: MIRTAZAPINE
     Dosage: 1 DF, 1X/DAY
     Dates: start: 20180103
  11. PREDNISOLONE. [Concomitant]
     Active Substance: PREDNISOLONE
     Dosage: 10 MG, DAILY (AS ADVISED)
     Dates: start: 20171115
  12. OMEPRAZOLE. [Concomitant]
     Active Substance: OMEPRAZOLE
     Dosage: 1 DF, 1X/DAY
     Dates: start: 20171012
  13. GABAPENTIN. [Concomitant]
     Active Substance: GABAPENTIN
     Dosage: AS ADVISED- TITRATE UP - MAXIMUM DOSE OF 3
     Dates: start: 20171115
  14. RAMIPRIL. [Concomitant]
     Active Substance: RAMIPRIL
     Indication: HYPERTENSION
     Dosage: 2 DF, DAILY
     Dates: start: 20180110
  15. BISOPROLOL [Concomitant]
     Active Substance: BISOPROLOL
     Dosage: 1 DF, DAILY
     Dates: start: 20171115
  16. SILDENAFIL. [Concomitant]
     Active Substance: SILDENAFIL
     Dosage: AS  DIRECTED
     Dates: start: 20180110
  17. NAPROXEN. [Concomitant]
     Active Substance: NAPROXEN
     Dosage: 2 DF, DAILY
     Dates: start: 20171115
  18. TRAMADOL. [Concomitant]
     Active Substance: TRAMADOL
     Dosage: 2 DF, 1X/DAY
     Dates: start: 20171115
  19. HYDROXOCOBALAMIN [Concomitant]
     Active Substance: HYDROXOCOBALAMIN
     Dosage: 1 DF, EVERY 3 MONTHS AMPOULE
     Dates: start: 20170720
  20. METFORMIN [Concomitant]
     Active Substance: METFORMIN HYDROCHLORIDE
     Dosage: 4 DF, DAILY
     Dates: start: 20171115
  21. DULOXETINE. [Concomitant]
     Active Substance: DULOXETINE
     Dosage: 2 DF, AT NIGHT OR AS DIRECTED
     Dates: start: 20171115

REACTIONS (7)
  - Fatigue [Not Recovered/Not Resolved]
  - Myalgia [Not Recovered/Not Resolved]
  - Loss of proprioception [Not Recovered/Not Resolved]
  - Pain in extremity [Unknown]
  - Tremor [Not Recovered/Not Resolved]
  - Balance disorder [Not Recovered/Not Resolved]
  - Neurotoxicity [Not Recovered/Not Resolved]

NARRATIVE: CASE EVENT DATE: 20180628
